FAERS Safety Report 9071929 (Version 1)
Quarter: 2013Q1

REPORT INFORMATION
  Report Type: Spontaneous
  Country: US (occurrence: US)
  Receive Date: 20130129
  Receipt Date: 20130129
  Transmission Date: 20140127
  Serious: Yes (Hospitalization)
  Sender: FDA-Public Use
  Company Number: US-ASTRAZENECA-2013SE05103

PATIENT
  Sex: Female

DRUGS (4)
  1. SEROQUEL [Suspect]
     Route: 048
  2. SEROQUEL [Suspect]
     Dosage: 200-300 MG DAILY
     Route: 048
  3. LISINOPRIL [Suspect]
     Route: 048
  4. HCTZ [Suspect]
     Route: 048

REACTIONS (1)
  - Pancreatitis [Unknown]
